FAERS Safety Report 15534856 (Version 1)
Quarter: 2018Q4

REPORT INFORMATION
  Report Type: Spontaneous
  Country: US (occurrence: US)
  Receive Date: 20181022
  Receipt Date: 20181022
  Transmission Date: 20190205
  Serious: Yes (Other)
  Sender: FDA-Public Use
  Company Number: US-TEVA-2018-US-964151

PATIENT
  Sex: Male

DRUGS (2)
  1. METOPROLOL SUCCINATE ER [Suspect]
     Active Substance: METOPROLOL SUCCINATE
     Indication: VENTRICULAR TACHYCARDIA
     Route: 065
     Dates: start: 201707, end: 201709
  2. METOPROLOL SUCCINATE ER [Suspect]
     Active Substance: METOPROLOL SUCCINATE
     Indication: TACHYCARDIA
     Dosage: 25 MG IN THE MORNING WITH BREAKFAST AND HALF OF A TABLET WITH DINNER
     Route: 065
     Dates: start: 2018

REACTIONS (4)
  - Ejection fraction decreased [Unknown]
  - Surgery [Unknown]
  - Discomfort [Unknown]
  - Cardiac ablation [Unknown]
